FAERS Safety Report 4758497-3 (Version None)
Quarter: 2005Q3

REPORT INFORMATION
  Report Type: 
  Country: None (occurrence: None)
  Receive Date: 20050826
  Receipt Date: 20050811
  Transmission Date: 20060218
  Serious: Yes (Congenital Anomaly, Other)
  Sender: FDA-Public Use
  Company Number: 2005EU000255

PATIENT
  Age: 26 Year
  Sex: Female
  Weight: 51 kg

DRUGS (2)
  1. PROTOPIC [Suspect]
     Indication: DERMATITIS ATOPIC
     Dosage: 0.10 %, BID, TOPICAL
     Route: 061
     Dates: start: 20040801, end: 20041201
  2. DIPROSONE [Concomitant]

REACTIONS (5)
  - ABORTION INDUCED [None]
  - CONDITION AGGRAVATED [None]
  - DERMATITIS ATOPIC [None]
  - DRUG EXPOSURE DURING PREGNANCY [None]
  - PREGNANCY [None]
